FAERS Safety Report 7593269-6 (Version None)
Quarter: 2011Q3

REPORT INFORMATION
  Report Type: 
  Country: None (occurrence: None)
  Receive Date: 20110706
  Receipt Date: 20110627
  Transmission Date: 20111222
  Serious: Yes (Hospitalization, Other)
  Sender: FDA-Public Use
  Company Number: US-GENZYME-CERZ-1001767

PATIENT

DRUGS (2)
  1. CEREZYME [Suspect]
     Indication: GAUCHER'S DISEASE
     Dosage: 58.5 U/KG, Q2W
     Route: 042
     Dates: start: 20010208
  2. CEREZYME [Suspect]
     Dosage: 60 U/KG, Q2W
     Route: 042

REACTIONS (3)
  - FALL [None]
  - OSTEOMYELITIS [None]
  - LOWER LIMB FRACTURE [None]
